FAERS Safety Report 20510030 (Version 1)
Quarter: 2022Q1

REPORT INFORMATION
  Report Type: Spontaneous
  Country: US (occurrence: US)
  Receive Date: 20220224
  Receipt Date: 20220224
  Transmission Date: 20220424
  Serious: No
  Sender: FDA-Public Use
  Company Number: US-ORPHANEU-2018004233

PATIENT

DRUGS (4)
  1. CYSTADANE [Suspect]
     Active Substance: BETAINE
     Indication: Homocystinuria
     Dosage: 3 SCOOPS, TID (THREE TIMES A DAY)
     Route: 048
     Dates: start: 20171218
  2. CYSTADANE [Suspect]
     Active Substance: BETAINE
     Dosage: 3 SCOOPS, TID (THREE TIMES A DAY)
     Route: 048
     Dates: start: 201801
  3. PNV [Concomitant]
     Indication: Vitamin supplementation
     Dosage: UNK, QD
  4. ASPIRIN [Concomitant]
     Active Substance: ASPIRIN
     Indication: Prophylaxis
     Dosage: UNK, QD

REACTIONS (4)
  - Uterine contractions during pregnancy [Unknown]
  - Exposure during pregnancy [Recovered/Resolved]
  - Normal newborn [Recovered/Resolved]
  - Product use issue [Recovered/Resolved]

NARRATIVE: CASE EVENT DATE: 20180101
